FAERS Safety Report 11796826 (Version 1)
Quarter: 2015Q4

REPORT INFORMATION
  Report Type: Spontaneous
  Country: US (occurrence: None)
  Receive Date: 20151202
  Receipt Date: 20151202
  Transmission Date: 20160305
  Serious: Yes (Life-Threatening, Hospitalization)
  Sender: FDA-Public Use
  Company Number: None

PATIENT
  Age: 58 Year
  Sex: Female
  Weight: 161.94 kg

DRUGS (6)
  1. PROTONIX [Concomitant]
     Active Substance: PANTOPRAZOLE SODIUM
  2. FOSAPREPITANT/PLACEBO 150MG Q 48 HOURS [Suspect]
     Active Substance: FOSAPREPITANT
     Indication: ANTIEMETIC SUPPORTIVE CARE
     Route: 042
     Dates: start: 20151115
  3. HUMALOG [Concomitant]
     Active Substance: INSULIN LISPRO
  4. LANTUS [Concomitant]
     Active Substance: INSULIN GLARGINE
  5. ZESTRIL [Concomitant]
     Active Substance: LISINOPRIL
  6. PROLEUKIN [Suspect]
     Active Substance: ALDESLEUKIN
     Indication: METASTATIC RENAL CELL CARCINOMA
     Dosage: 77 MILLION UNITS Q 8 IV
     Route: 042
     Dates: start: 20151115

REACTIONS (3)
  - Bradycardia [None]
  - Pulse absent [None]
  - Hyporesponsive to stimuli [None]

NARRATIVE: CASE EVENT DATE: 20151119
